FAERS Safety Report 23105739 (Version 1)
Quarter: 2023Q4

REPORT INFORMATION
  Report Type: Spontaneous
  Country: US (occurrence: None)
  Receive Date: 20231024
  Receipt Date: 20231024
  Transmission Date: 20240109
  Serious: Yes (Hospitalization)
  Sender: FDA-Public Use
  Company Number: None

PATIENT
  Age: 46 Year
  Sex: Male

DRUGS (1)
  1. ATORVASTATIN CALCIUM [Suspect]
     Active Substance: ATORVASTATIN CALCIUM
     Dosage: FREQUENCY : AT BEDTIME;?
     Route: 048
     Dates: start: 20200904, end: 20210731

REACTIONS (1)
  - Hepatotoxicity [None]

NARRATIVE: CASE EVENT DATE: 20210730
